FAERS Safety Report 23907018 (Version 1)
Quarter: 2024Q2

REPORT INFORMATION
  Report Type: Spontaneous
  Country: AU (occurrence: AU)
  Receive Date: 20240528
  Receipt Date: 20240528
  Transmission Date: 20240716
  Serious: Yes (Other)
  Sender: FDA-Public Use
  Company Number: AU-ABBVIE-5771517

PATIENT
  Age: 68 Year
  Sex: Female

DRUGS (2)
  1. ADALIMUMAB [Suspect]
     Active Substance: ADALIMUMAB\ISOPROPYL ALCOHOL
     Indication: Rheumatoid arthritis
     Route: 058
  2. MITOMYCIN C [Concomitant]
     Active Substance: MITOMYCIN
     Indication: Product used for unknown indication
     Route: 065

REACTIONS (1)
  - Necrotising scleritis [Unknown]
